FAERS Safety Report 4668408-7 (Version None)
Quarter: 2005Q2

REPORT INFORMATION
  Report Type: 
  Country: None (occurrence: None)
  Receive Date: 20050523
  Receipt Date: 20040412
  Transmission Date: 20051028
  Serious: Yes (Other)
  Sender: FDA-Public Use
  Company Number: PHBS2004CA05030

PATIENT
  Sex: Male

DRUGS (6)
  1. PAMIDRONATE DISODIUM [Suspect]
     Route: 042
     Dates: start: 20021201
  2. PREDNISONE [Concomitant]
     Route: 065
  3. CYCLOPHOSPHAMIDE [Concomitant]
     Route: 065
     Dates: end: 20031101
  4. CLINDAMYCIN [Concomitant]
     Route: 065
  5. MELPHALAN [Concomitant]
     Route: 065
  6. MS CONTIN [Concomitant]
     Route: 065

REACTIONS (7)
  - ASEPTIC NECROSIS BONE [None]
  - BONE DISORDER [None]
  - GLOSSODYNIA [None]
  - PAIN IN JAW [None]
  - TONGUE ULCERATION [None]
  - TOOTH DISORDER [None]
  - TOOTH EXTRACTION [None]
